APPROVED DRUG PRODUCT: DILTIAZEM HYDROCHLORIDE
Active Ingredient: DILTIAZEM HYDROCHLORIDE
Strength: 120MG
Dosage Form/Route: TABLET;ORAL
Application: A074067 | Product #004
Applicant: TEVA PHARMACEUTICALS USA
Approved: Nov 5, 1992 | RLD: No | RS: No | Type: DISCN